FAERS Safety Report 15658208 (Version 4)
Quarter: 2019Q2

REPORT INFORMATION
  Report Type: Report from Study
  Country: US (occurrence: US)
  Receive Date: 20181126
  Receipt Date: 20190514
  Transmission Date: 20190711
  Serious: Yes (Other)
  Sender: FDA-Public Use
  Company Number: PHEH2018US049044

PATIENT
  Sex: Female

DRUGS (1)
  1. AFINITOR [Suspect]
     Active Substance: EVEROLIMUS
     Indication: EPILEPSY
     Dosage: 5 MG, QD
     Route: 048
     Dates: start: 20180914

REACTIONS (4)
  - Abnormal behaviour [Unknown]
  - Blood cholesterol increased [Unknown]
  - Seizure [Unknown]
  - Anxiety [Unknown]
